FAERS Safety Report 19643022 (Version 5)
Quarter: 2022Q1

REPORT INFORMATION
  Report Type: Report from Study
  Country: AR (occurrence: AR)
  Receive Date: 20210731
  Receipt Date: 20220321
  Transmission Date: 20220424
  Serious: Yes (Other)
  Sender: FDA-Public Use
  Company Number: NVSC2021AR165945

PATIENT
  Age: 2 Year
  Sex: Male

DRUGS (1)
  1. ZOLGENSMA [Suspect]
     Active Substance: ONASEMNOGENE ABEPARVOVEC-XIOI
     Indication: Spinal muscular atrophy
     Dosage: UNK, ONCE/SINGLE
     Route: 042
     Dates: start: 20210618

REACTIONS (9)
  - Clonic convulsion [Unknown]
  - Eye movement disorder [Unknown]
  - Seizure [Not Recovered/Not Resolved]
  - Slow response to stimuli [Unknown]
  - Adrenal insufficiency [Unknown]
  - Atelectasis [Unknown]
  - Increased bronchial secretion [Unknown]
  - Oxygen saturation decreased [Unknown]
  - Blood glucose decreased [Not Recovered/Not Resolved]

NARRATIVE: CASE EVENT DATE: 20210711
